FAERS Safety Report 8815295 (Version 1)
Quarter: 2012Q4

REPORT INFORMATION
  Report Type: 
  Country: US (occurrence: US)
  Receive Date: 20120928
  Receipt Date: 20120928
  Transmission Date: 20130627
  Serious: Yes (Hospitalization, Other)
  Sender: FDA-Public Use
  Company Number: CHPA2012US020211

PATIENT
  Age: 76 Year
  Sex: Female

DRUGS (2)
  1. MINERAL OIL [Suspect]
     Indication: PSORIASIS
     Dosage: 1 cap full in her bath
     Route: 061
     Dates: start: 1981
  2. ANTIBIOTICS [Suspect]
     Indication: HEPATITIS C
     Dosage: Unk, Unk
     Route: 042
     Dates: start: 201204, end: 2012

REACTIONS (10)
  - Hepatitis C [Recovered/Resolved]
  - Drug withdrawal syndrome [Recovered/Resolved]
  - Gastric haemorrhage [Recovered/Resolved]
  - Hypersensitivity [Recovered/Resolved]
  - Muscle strain [Recovered/Resolved]
  - Pain in extremity [Recovered/Resolved]
  - Oedema peripheral [Recovered/Resolved]
  - Weight decreased [Recovered/Resolved]
  - Erythema [Recovered/Resolved]
  - Off label use [Unknown]
